FAERS Safety Report 22138987 (Version 1)
Quarter: 2023Q1

REPORT INFORMATION
  Report Type: Spontaneous
  Country: US (occurrence: US)
  Receive Date: 20230327
  Receipt Date: 20230327
  Transmission Date: 20230418
  Serious: Yes (Other)
  Sender: FDA-Public Use
  Company Number: US-SANOFI-01543546

PATIENT

DRUGS (1)
  1. DUPIXENT [Suspect]
     Active Substance: DUPILUMAB
     Indication: Dermatitis atopic
     Dosage: DRUG TREATMENT DURATION:SINCE ~1 TO 2 YEARS AGO

REACTIONS (1)
  - Keratoconus [Not Recovered/Not Resolved]

NARRATIVE: CASE EVENT DATE: 20230101
